FAERS Safety Report 19026489 (Version 1)
Quarter: 2021Q1

REPORT INFORMATION
  Report Type: Report from Study
  Country: US (occurrence: US)
  Receive Date: 20210318
  Receipt Date: 20210318
  Transmission Date: 20210420
  Serious: Yes (Hospitalization)
  Sender: FDA-Public Use
  Company Number: US-PACIRA-2021000204

PATIENT
  Age: 67 Year
  Sex: Female
  Weight: 85.2 kg

DRUGS (16)
  1. CELEBREX [Concomitant]
     Active Substance: CELECOXIB
     Indication: PREOPERATIVE CARE
     Dosage: NOT PROVIDED
     Route: 065
  2. ONDANSETRON [Concomitant]
     Active Substance: ONDANSETRON
     Indication: INTRAOPERATIVE CARE
     Dosage: NOT REPORTED
     Route: 065
  3. SALINE [Concomitant]
     Active Substance: SODIUM CHLORIDE
     Indication: POSTOPERATIVE ANALGESIA
     Dosage: 2019; 40ML WITH 20ML EXPAREL. TOTAL VOLUME 60ML
     Route: 065
  4. OXYCONTIN [Concomitant]
     Active Substance: OXYCODONE HYDROCHLORIDE
     Indication: POSTOPERATIVE ANALGESIA
     Dosage: 8:19PM??12 HR 10 MG
     Route: 065
     Dates: start: 20190514
  5. MIDAZOLAM. [Concomitant]
     Active Substance: MIDAZOLAM
     Indication: INTRAOPERATIVE CARE
     Dosage: NOT REPORTED
     Route: 065
  6. METOCLOPRAMI [Concomitant]
     Indication: INTRAOPERATIVE CARE
     Dosage: NOT REPORTED
     Route: 065
  7. PERCOCET [Concomitant]
     Active Substance: ACETAMINOPHEN\OXYCODONE HYDROCHLORIDE
     Indication: POSTOPERATIVE ANALGESIA
     Dosage: 8:19PM, 11:59PM, 1:42PM, 4:47PM 1 TABLET 1??1 TABLET 1
     Route: 065
     Dates: start: 20190514
  8. EXPAREL [Suspect]
     Active Substance: BUPIVACAINE
     Indication: POSTOPERATIVE ANALGESIA
     Dosage: 2019 20ML EXPAREL AND 40ML SALINE TOTAL VOLUME 60ML
     Route: 065
  9. PERCOCET [Concomitant]
     Active Substance: ACETAMINOPHEN\OXYCODONE HYDROCHLORIDE
     Indication: POSTOPERATIVE ANALGESIA
     Dosage: 10:47AM 1 TABLET 1??1 TABLET 1
     Route: 065
     Dates: start: 20190514
  10. PROPOFOL. [Concomitant]
     Active Substance: PROPOFOL
     Indication: INTRAOPERATIVE CARE
     Dosage: NOT REPORTED
     Route: 065
  11. TYLENOL [Concomitant]
     Active Substance: ACETAMINOPHEN
     Indication: INTRAOPERATIVE CARE
     Dosage: NOT REPORTED
     Route: 042
  12. OXYCONTIN [Concomitant]
     Active Substance: OXYCODONE HYDROCHLORIDE
     Indication: POSTOPERATIVE ANALGESIA
     Dosage: 8:00AM??12 HR 10 MG
     Route: 065
     Dates: start: 20190515
  13. BUPIVACAINE. [Suspect]
     Active Substance: BUPIVACAINE
     Indication: POSTOPERATIVE ANALGESIA
     Dosage: 2019; 30ML
     Route: 065
  14. PERCOCET [Concomitant]
     Active Substance: ACETAMINOPHEN\OXYCODONE HYDROCHLORIDE
     Indication: POSTOPERATIVE ANALGESIA
     Dosage: 1?2 TABLET BY MOUTH EVERY 4 (FOUR) HOURS AS NEEDED (Q4H PRN) AT DISCHARGE
     Route: 048
  15. DEXAMETHASONE. [Concomitant]
     Active Substance: DEXAMETHASONE
     Indication: INTRAOPERATIVE CARE
     Dosage: NOT REPORTED
     Route: 065
  16. PERCOCET [Concomitant]
     Active Substance: ACETAMINOPHEN\OXYCODONE HYDROCHLORIDE
     Indication: POSTOPERATIVE ANALGESIA
     Dosage: 4:54AM, 7:56AM, 10:47AM, ??1 TABLET 1
     Route: 065
     Dates: start: 20190515

REACTIONS (1)
  - Osteoarthritis [Unknown]
